FAERS Safety Report 17329451 (Version 1)
Quarter: 2020Q1

REPORT INFORMATION
  Report Type: Spontaneous
  Country: US (occurrence: US)
  Receive Date: 20200127
  Receipt Date: 20200127
  Transmission Date: 20200409
  Serious: No
  Sender: FDA-Public Use
  Company Number: US-SA-2020SA017810

PATIENT
  Sex: Female

DRUGS (1)
  1. KEVZARA [Suspect]
     Active Substance: SARILUMAB
     Dosage: 200 MG, QOW
     Route: 058
     Dates: start: 20190923

REACTIONS (6)
  - Pollakiuria [Unknown]
  - Impaired healing [Unknown]
  - Skin exfoliation [Unknown]
  - Hunger [Unknown]
  - Thirst [Unknown]
  - Rash [Unknown]
